FAERS Safety Report 5895708-5 (Version None)
Quarter: 2008Q3

REPORT INFORMATION
  Report Type: 
  Country: None (occurrence: None)
  Receive Date: 20080924
  Receipt Date: 20080623
  Transmission Date: 20090109
  Serious: No
  Sender: FDA-Public Use
  Company Number: US-BAYER-200827240NA

PATIENT
  Sex: Female

DRUGS (2)
  1. YASMIN [Suspect]
     Indication: ACNE
     Route: 048
  2. ACCUTANE [Concomitant]
     Indication: ACNE

REACTIONS (2)
  - COELIAC DISEASE [None]
  - MALAISE [None]
